FAERS Safety Report 9967581 (Version 1)
Quarter: 2014Q1

REPORT INFORMATION
  Report Type: Report from Study
  Country: US (occurrence: US)
  Receive Date: 20140305
  Receipt Date: 20140305
  Transmission Date: 20141002
  Serious: No
  Sender: FDA-Public Use
  Company Number: US-ABBVIE-13P-163-1139337-00

PATIENT
  Age: 31 Year
  Sex: Female
  Weight: 108.05 kg

DRUGS (3)
  1. HUMIRA [Suspect]
     Indication: CROHN^S DISEASE
     Dosage: LOADING DOSE
     Dates: start: 20130826, end: 20130826
  2. CIPRO [Concomitant]
     Indication: CROHN^S DISEASE
  3. FLAGYL [Concomitant]
     Indication: CROHN^S DISEASE

REACTIONS (2)
  - Paraesthesia [Recovered/Resolved]
  - Paraesthesia [Recovered/Resolved]
